FAERS Safety Report 16681978 (Version 1)
Quarter: 2019Q3

REPORT INFORMATION
  Report Type: Spontaneous
  Country: US (occurrence: US)
  Receive Date: 20190619
  Receipt Date: 20190619
  Transmission Date: 20191004
  Serious: Yes (Death)
  Sender: FDA-Public Use
  Company Number: None

PATIENT
  Sex: Male

DRUGS (1)
  1. LITHIUM. [Suspect]
     Active Substance: LITHIUM

REACTIONS (6)
  - Weight increased [None]
  - Lethargy [None]
  - Swelling [None]
  - Tremor [None]
  - Drug hypersensitivity [None]
  - Muscular weakness [None]
